FAERS Safety Report 7054773-2 (Version None)
Quarter: 2010Q4

REPORT INFORMATION
  Report Type: 
  Country: None (occurrence: None)
  Receive Date: 20101018
  Receipt Date: 20101004
  Transmission Date: 20110411
  Serious: Yes (Other)
  Sender: FDA-Public Use
  Company Number: 10-001428

PATIENT
  Age: 73 Year
  Sex: Female
  Weight: 68 kg

DRUGS (2)
  1. ESTRACE [Suspect]
     Indication: BLADDER DISORDER
     Dosage: 1 G, EVERY TWO WEEKS, VAGINAL
     Route: 067
     Dates: start: 20100802, end: 20101004
  2. BENAZEPRIL W/HYDROCHLOROTHIAZIDE (BENAZEPRIL, HYDROCHLOROTHIAZIDE) [Concomitant]

REACTIONS (4)
  - ABDOMINAL PAIN [None]
  - FEELING ABNORMAL [None]
  - MOBILITY DECREASED [None]
  - POLYMYALGIA RHEUMATICA [None]
